FAERS Safety Report 23096952 (Version 1)
Quarter: 2023Q4

REPORT INFORMATION
  Report Type: Spontaneous
  Country: US (occurrence: US)
  Receive Date: 20231023
  Receipt Date: 20231023
  Transmission Date: 20240110
  Serious: No
  Sender: FDA-Public Use
  Company Number: US-INCYTE CORPORATION-2023IN010755

PATIENT

DRUGS (2)
  1. JAKAFI [Suspect]
     Active Substance: RUXOLITINIB
     Indication: Myelofibrosis
     Dosage: 10 MILLIGRAM, BID
     Route: 048
     Dates: start: 202101
  2. TORSEMIDE [Suspect]
     Active Substance: TORSEMIDE
     Route: 065

REACTIONS (3)
  - Dehydration [Unknown]
  - Asthenia [Unknown]
  - Gait inability [Unknown]
